FAERS Safety Report 18890677 (Version 1)
Quarter: 2021Q1

REPORT INFORMATION
  Report Type: Spontaneous
  Country: US (occurrence: US)
  Receive Date: 20210215
  Receipt Date: 20210215
  Transmission Date: 20210420
  Serious: No
  Sender: FDA-Public Use
  Company Number: US-GLAXOSMITHKLINE-USCH2021006350

PATIENT
  Age: 43 Year
  Sex: Male

DRUGS (1)
  1. ABREVA [Suspect]
     Active Substance: DOCOSANOL
     Indication: ORAL HERPES
     Dates: start: 20210206, end: 20210209

REACTIONS (2)
  - Drug ineffective [Unknown]
  - Lip dry [Recovered/Resolved]

NARRATIVE: CASE EVENT DATE: 20210206
